FAERS Safety Report 14568724 (Version 1)
Quarter: 2018Q1

REPORT INFORMATION
  Report Type: Report from Study
  Country: None (occurrence: DE)
  Receive Date: 20180223
  Receipt Date: 20180223
  Transmission Date: 20180509
  Serious: Yes (Hospitalization, Other)
  Sender: FDA-Public Use
  Company Number: DE-ABBVIE-18P-062-2260633-00

PATIENT
  Age: 25 Year
  Sex: Male
  Weight: 57 kg

DRUGS (1)
  1. HUMIRA [Suspect]
     Active Substance: ADALIMUMAB
     Indication: COLITIS ULCERATIVE
     Route: 058
     Dates: start: 20140929

REACTIONS (2)
  - Anal abscess [Recovered/Resolved]
  - Anal fistula [Recovered/Resolved]

NARRATIVE: CASE EVENT DATE: 20170304
